FAERS Safety Report 6134239-4 (Version None)
Quarter: 2009Q1

REPORT INFORMATION
  Report Type: 
  Country: None (occurrence: None)
  Receive Date: 20090326
  Receipt Date: 20090324
  Transmission Date: 20090719
  Serious: Yes (Other)
  Sender: FDA-Public Use
  Company Number: US-GILEAD-2009-0020070

PATIENT
  Sex: Female
  Weight: 79.45 kg

DRUGS (16)
  1. LETAIRIS [Suspect]
     Indication: PULMONARY ARTERIAL HYPERTENSION
     Route: 048
     Dates: start: 20080627
  2. COUMADIN [Concomitant]
  3. REMODULIN [Concomitant]
  4. REVATIO [Concomitant]
  5. LASIX [Concomitant]
  6. LOMOTIL [Concomitant]
  7. ADVAIR HFA [Concomitant]
  8. CELEXA [Concomitant]
  9. SINGULAIR [Concomitant]
  10. PROTONIX [Concomitant]
  11. LIPITOR [Concomitant]
  12. DILTIAZEM [Concomitant]
  13. PROCHLORPERAZINE [Concomitant]
  14. SPIRONOLACTONE [Concomitant]
  15. POTASSIUM CHLORIDE [Concomitant]
  16. DIGOXIN [Concomitant]

REACTIONS (3)
  - GASTRIC DISORDER [None]
  - PETECHIAE [None]
  - SWELLING [None]
